FAERS Safety Report 6758841-1 (Version None)
Quarter: 2010Q2

REPORT INFORMATION
  Report Type: 
  Country: None (occurrence: None)
  Receive Date: 20100603
  Receipt Date: 20100519
  Transmission Date: 20101027
  Serious: Yes (Hospitalization)
  Sender: FDA-Public Use
  Company Number: 012210

PATIENT
  Age: 68 Year
  Sex: Male

DRUGS (3)
  1. OMEPRAZOLE [Suspect]
  2. PANTOPRAZOLE SODIUM [Suspect]
  3. LANSOPRAZOLE [Concomitant]

REACTIONS (9)
  - CARDIO-RESPIRATORY ARREST [None]
  - DIZZINESS [None]
  - ELECTROCARDIOGRAM ST SEGMENT ELEVATION [None]
  - ERYTHEMA [None]
  - HYPERHIDROSIS [None]
  - KOUNIS SYNDROME [None]
  - LOSS OF CONSCIOUSNESS [None]
  - PRURITUS [None]
  - VENTRICULAR FIBRILLATION [None]
